FAERS Safety Report 9656636 (Version 2)
Quarter: 2013Q4

REPORT INFORMATION
  Report Type: Spontaneous
  Country: FI (occurrence: FI)
  Receive Date: 20131030
  Receipt Date: 20131113
  Transmission Date: 20140711
  Serious: Yes (Other)
  Sender: FDA-Public Use
  Company Number: FI-ASTELLAS-2013EU008982

PATIENT
  Age: 62 Year
  Sex: Female

DRUGS (5)
  1. BETMIGA [Suspect]
     Indication: MICTURITION URGENCY
     Dosage: 10 MG, UID/QD
     Route: 048
     Dates: start: 20130914, end: 20130928
  2. EMCONCOR [Concomitant]
     Dosage: 5 MG, UID/QD
     Route: 065
  3. COZAAR COMP [Concomitant]
     Dosage: UNK
     Route: 065
  4. FEMAR [Concomitant]
     Dosage: UNK
     Route: 065
  5. ARCOXIA [Concomitant]
     Dosage: UNK
     Route: 065

REACTIONS (2)
  - Bladder sphincter atony [Recovered/Resolved]
  - Micturition urgency [Recovered/Resolved]
